FAERS Safety Report 24817209 (Version 2)
Quarter: 2025Q2

REPORT INFORMATION
  Report Type: Spontaneous
  Country: SE (occurrence: SE)
  Receive Date: 20250108
  Receipt Date: 20250401
  Transmission Date: 20250716
  Serious: Yes (Death, Life-Threatening, Hospitalization, Other)
  Sender: BRISTOL MYERS SQUIBB
  Company Number: None

PATIENT
  Age: 73 Year
  Sex: Male
  Weight: 80 kg

DRUGS (2)
  1. NIVOLUMAB [Suspect]
     Active Substance: NIVOLUMAB
     Indication: Product used for unknown indication
     Route: 042
     Dates: start: 20241120, end: 20241212
  2. IPILIMUMAB [Suspect]
     Active Substance: IPILIMUMAB
     Indication: Product used for unknown indication
     Route: 042
     Dates: start: 20241120, end: 20241212

REACTIONS (4)
  - Myositis [Fatal]
  - Colitis [Fatal]
  - Myocarditis [Fatal]
  - Off label use [Unknown]

NARRATIVE: CASE EVENT DATE: 20241127
